FAERS Safety Report 25863465 (Version 1)
Quarter: 2025Q3

REPORT INFORMATION
  Report Type: Spontaneous
  Country: US (occurrence: US)
  Receive Date: 20250930
  Receipt Date: 20250930
  Transmission Date: 20251021
  Serious: No
  Sender: AMGEN
  Company Number: US-AMGEN-USASP2025191643

PATIENT
  Age: 85 Year
  Sex: Female

DRUGS (2)
  1. REPATHA [Suspect]
     Active Substance: EVOLOCUMAB
     Indication: Blood cholesterol increased
     Dosage: 140 MILLIGRAM, Q2WK
     Route: 065
     Dates: start: 20250620
  2. COVID-19 vaccine [Concomitant]

REACTIONS (4)
  - Device difficult to use [Unknown]
  - Drug dose omission by device [Unknown]
  - Injection site pain [Unknown]
  - Product communication issue [Unknown]

NARRATIVE: CASE EVENT DATE: 20250919
